FAERS Safety Report 4985534-3 (Version None)
Quarter: 2006Q2

REPORT INFORMATION
  Report Type: 
  Country: None (occurrence: None)
  Receive Date: 20060428
  Receipt Date: 20051007
  Transmission Date: 20061013
  Serious: No
  Sender: FDA-Public Use
  Company Number: US-GLAXOSMITHKLINE-A0577522A

PATIENT
  Age: 49 Year
  Sex: Female

DRUGS (14)
  1. FLOVENT [Suspect]
     Indication: ASTHMA
     Route: 055
     Dates: start: 20040801, end: 20051005
  2. ADVAIR DISKUS 100/50 [Suspect]
     Indication: ASTHMA
     Dosage: 1PUFF TWICE PER DAY
     Route: 055
     Dates: start: 20051005
  3. ALBUTEROL SULFATE AUTOHALER [Concomitant]
  4. GLUCOPHAGE [Concomitant]
  5. CETIRIZINE [Concomitant]
  6. DETROL LA [Concomitant]
  7. FLONASE [Concomitant]
  8. LISINOPRIL [Concomitant]
  9. METOPROLOL [Concomitant]
  10. LIPITOR [Concomitant]
  11. LAMISIL [Concomitant]
  12. MAXALT [Concomitant]
  13. LANTUS [Concomitant]
  14. NOVOLOG [Concomitant]

REACTIONS (2)
  - DYSPNOEA [None]
  - PHARMACEUTICAL PRODUCT COMPLAINT [None]
